FAERS Safety Report 4681037-4 (Version None)
Quarter: 2005Q2

REPORT INFORMATION
  Report Type: 
  Country: None (occurrence: None)
  Receive Date: 20050601
  Receipt Date: 20050601
  Transmission Date: 20051028
  Serious: Yes (Hospitalization)
  Sender: FDA-Public Use
  Company Number: None

PATIENT
  Age: 47 Year
  Sex: Male
  Weight: 60.6 kg

DRUGS (2)
  1. WARFARIN 6MG [Suspect]
     Indication: DEEP VEIN THROMBOSIS
     Dosage: 6MG DAILY ORAL
     Route: 048
  2. PLAVIX [Suspect]
     Indication: DEEP VEIN THROMBOSIS
     Dosage: 75MG DAILY ORAL
     Route: 048

REACTIONS (3)
  - DIALYSIS [None]
  - EPISTAXIS [None]
  - INTERNATIONAL NORMALISED RATIO INCREASED [None]
